FAERS Safety Report 24709835 (Version 1)
Quarter: 2024Q4

REPORT INFORMATION
  Report Type: Spontaneous
  Country: FR (occurrence: FR)
  Receive Date: 20241209
  Receipt Date: 20241209
  Transmission Date: 20250114
  Serious: Yes (Hospitalization, Other)
  Sender: AUROBINDO
  Company Number: FR-AFSSAPS-AVMP2024000304

PATIENT
  Age: 48 Year
  Sex: Female

DRUGS (9)
  1. TRAMADOL [Suspect]
     Active Substance: TRAMADOL
     Indication: Product used for unknown indication
     Dosage: 750 MILLIGRAM, ONCE A DAY(LP 150MG, 4 ? 6 FOIS/J)
     Route: 048
     Dates: start: 2022, end: 2023
  2. TRAMADOL [Suspect]
     Active Substance: TRAMADOL
     Dosage: 500 MILLIGRAM, ONCE A DAY(150MG EN COMPRIM? MATIN ET SOIR + 50MG EN EFFERVESCENT ? LA DEMANDE MAX 4
     Route: 048
     Dates: start: 2023, end: 2024
  3. TRAMADOL [Suspect]
     Active Substance: TRAMADOL
     Dosage: 400 MILLIGRAM, ONCE A DAY(LP 200MG  MATIN ET SOIR)
     Route: 048
     Dates: start: 2024
  4. ZOLPIDEM [Suspect]
     Active Substance: ZOLPIDEM TARTRATE
     Indication: Product used for unknown indication
     Dosage: 10 MILLIGRAM, ONCE A DAY
     Route: 048
     Dates: start: 2023, end: 2024
  5. ZOLPIDEM [Suspect]
     Active Substance: ZOLPIDEM TARTRATE
     Dosage: 35 MILLIGRAM, ONCE A DAY(DE 2 ? 5 COMPRIM?S PAR JOUR)
     Route: 048
     Dates: start: 2024
  6. MORPHINE SULFATE [Suspect]
     Active Substance: MORPHINE SULFATE
     Indication: Product used for unknown indication
     Dosage: UNK(5MG ? LA DEMANDE)
     Route: 048
     Dates: start: 2023, end: 2024
  7. FENTANYL [Suspect]
     Active Substance: FENTANYL
     Indication: Product used for unknown indication
     Dosage: 50 MICROGRAM, ONCE A DAY
     Route: 062
     Dates: start: 2024, end: 20240719
  8. FENTANYL [Suspect]
     Active Substance: FENTANYL
     Dosage: 25 MICROGRAM, ONCE A DAY
     Route: 062
     Dates: start: 20240719, end: 202409
  9. OXYCODONE HYDROCHLORIDE [Suspect]
     Active Substance: OXYCODONE HYDROCHLORIDE
     Indication: Product used for unknown indication
     Dosage: UNK
     Route: 065
     Dates: start: 2023, end: 20240719

REACTIONS (1)
  - Drug use disorder [Not Recovered/Not Resolved]

NARRATIVE: CASE EVENT DATE: 20240101
